FAERS Safety Report 7837766 (Version 3)
Quarter: 2013Q3

REPORT INFORMATION
  Report Type: Spontaneous
  Country: US (occurrence: US)
  Receive Date: 20110302
  Receipt Date: 20130725
  Transmission Date: 20140515
  Serious: Yes (Hospitalization, Other)
  Sender: FDA-Public Use
  Company Number: US-PFIZER INC-2010085404

PATIENT
  Age: 7 Year
  Sex: Female
  Weight: 33.5 kg

DRUGS (4)
  1. DILANTIN [Suspect]
     Indication: CONVULSION
     Dosage: 200 MG, 2X/DAY
     Route: 042
     Dates: start: 20040822, end: 20040822
  2. DILANTIN-125 [Suspect]
     Indication: CONVULSION
     Dosage: 125MG/5ML ONE AND HALF TABLE SPOON
     Route: 048
     Dates: start: 20040822, end: 200408
  3. DILANTIN-125 [Suspect]
     Dosage: ONE TABLE SPOON
     Route: 048
     Dates: start: 200408, end: 20040919
  4. ADDERALL [Concomitant]
     Indication: ATTENTION DEFICIT/HYPERACTIVITY DISORDER
     Dosage: 10 MG, 1X/DAY
     Route: 048

REACTIONS (1)
  - Stevens-Johnson syndrome [Unknown]
